FAERS Safety Report 4745247-X (Version None)
Quarter: 2005Q3

REPORT INFORMATION
  Report Type: 
  Country: None (occurrence: None)
  Receive Date: 20050812
  Receipt Date: 20050721
  Transmission Date: 20060218
  Serious: Yes (Hospitalization)
  Sender: FDA-Public Use
  Company Number: OMPQ-NO-0507S-1107

PATIENT
  Age: 78 Year
  Sex: Female
  Weight: 46 kg

DRUGS (4)
  1. OMNIPAQUE 300 [Suspect]
     Indication: INTRACRANIAL ANEURYSM
     Dosage: 80 ML, SINGLE DOSE, I.V.
     Route: 042
     Dates: start: 20050719, end: 20050719
  2. WARFARIN SODIUM [Concomitant]
  3. VERAPAMIL HYDROCHLORIDE (VASOLAN) [Concomitant]
  4. THEO-DUR [Concomitant]

REACTIONS (12)
  - CARDIAC FAILURE [None]
  - CHEST X-RAY ABNORMAL [None]
  - CHILLS [None]
  - DEPRESSED LEVEL OF CONSCIOUSNESS [None]
  - HYPERTHERMIA [None]
  - INFLAMMATION [None]
  - NAUSEA [None]
  - PLEURAL EFFUSION [None]
  - PNEUMONIA [None]
  - POST PROCEDURAL COMPLICATION [None]
  - TACHYCARDIA [None]
  - VENTRICULAR EXTRASYSTOLES [None]
